FAERS Safety Report 20853788 (Version 1)
Quarter: 2022Q2

REPORT INFORMATION
  Report Type: Spontaneous
  Country: US (occurrence: US)
  Receive Date: 20220520
  Receipt Date: 20220520
  Transmission Date: 20220721
  Serious: Yes (Other)
  Sender: FDA-Public Use
  Company Number: US-HERON THERAPEUTICS, INC-HRTX-2022-000807

PATIENT
  Age: 80 Year

DRUGS (1)
  1. ZYNRELEF [Suspect]
     Active Substance: BUPIVACAINE\MELOXICAM
     Indication: Postoperative analgesia
     Dosage: 14 MILLILITER, SINGLE
     Route: 026
     Dates: start: 20220502, end: 20220502

REACTIONS (2)
  - Wound dehiscence [Recovered/Resolved]
  - Wound drainage [Recovered/Resolved]

NARRATIVE: CASE EVENT DATE: 20220503
